FAERS Safety Report 25335176 (Version 1)
Quarter: 2025Q2

REPORT INFORMATION
  Report Type: Spontaneous
  Country: JP (occurrence: JP)
  Receive Date: 20250520
  Receipt Date: 20250520
  Transmission Date: 20250717
  Serious: Yes (Hospitalization, Other)
  Sender: BOEHRINGER INGELHEIM
  Company Number: JP-NBI-2025-BI-071671

PATIENT
  Age: 79 Year
  Sex: Female

DRUGS (2)
  1. OFEV [Suspect]
     Active Substance: NINTEDANIB
     Indication: Hypersensitivity pneumonitis
     Dates: start: 2023
  2. OFEV [Suspect]
     Active Substance: NINTEDANIB

REACTIONS (5)
  - Oedema peripheral [Unknown]
  - Hepatic cancer [Unknown]
  - Ocular neoplasm [Unknown]
  - Contusion [Unknown]
  - Weight fluctuation [Unknown]
